FAERS Safety Report 7641560-7 (Version None)
Quarter: 2011Q3

REPORT INFORMATION
  Report Type: 
  Country: None (occurrence: None)
  Receive Date: 20110728
  Receipt Date: 20110720
  Transmission Date: 20111222
  Serious: Yes (Hospitalization)
  Sender: FDA-Public Use
  Company Number: IE-JNJFOC-20110411108

PATIENT
  Sex: Male

DRUGS (2)
  1. ISTIN [Concomitant]
     Indication: BLOOD PRESSURE INCREASED
     Route: 065
  2. STELARA [Suspect]
     Indication: PSORIASIS
     Route: 058

REACTIONS (3)
  - PRESYNCOPE [None]
  - BRADYCARDIA [None]
  - HEADACHE [None]
